FAERS Safety Report 7465170-X (Version None)
Quarter: 2011Q2

REPORT INFORMATION
  Report Type: 
  Country: None (occurrence: None)
  Receive Date: 20110509
  Receipt Date: 20110429
  Transmission Date: 20111010
  Serious: Yes (Death, Hospitalization, Other)
  Sender: FDA-Public Use
  Company Number: US-JNJFOC-20100901280

PATIENT
  Sex: Female

DRUGS (2)
  1. LEVAQUIN [Suspect]
     Route: 042
  2. LEVAQUIN [Suspect]
     Indication: ILL-DEFINED DISORDER
     Route: 048

REACTIONS (1)
  - STEVENS-JOHNSON SYNDROME [None]
